FAERS Safety Report 7010974-0 (Version None)
Quarter: 2010Q3

REPORT INFORMATION
  Report Type: 
  Country: None (occurrence: None)
  Receive Date: 20100922
  Receipt Date: 20100922
  Transmission Date: 20110219
  Serious: Yes (Other)
  Sender: FDA-Public Use
  Company Number: None

PATIENT
  Age: 51 Year
  Sex: Male
  Weight: 68.9467 kg

DRUGS (1)
  1. CIPROFLOXACIN HCL [Suspect]
     Indication: EAR INFECTION
     Dosage: 1 TABLET TWICE A DAY BUCCAL
     Route: 002
     Dates: start: 20090310, end: 20090318

REACTIONS (2)
  - TENDON PAIN [None]
  - TENDON RUPTURE [None]
